FAERS Safety Report 13368199 (Version 2)
Quarter: 2017Q1

REPORT INFORMATION
  Report Type: Spontaneous
  Country: CN (occurrence: CN)
  Receive Date: 20170324
  Receipt Date: 20170330
  Transmission Date: 20170429
  Serious: Yes (Other)
  Sender: FDA-Public Use
  Company Number: CN-009507513-1703CHN008873

PATIENT

DRUGS (2)
  1. PUREGON [Suspect]
     Active Substance: FOLLITROPIN
     Dosage: UNK
     Dates: start: 20170113, end: 2017
  2. ORGALUTRAN [Suspect]
     Active Substance: GANIRELIX ACETATE
     Dosage: HALF OF THE SCHEDULE DOSE
     Dates: start: 20170317, end: 20170317

REACTIONS (3)
  - Anaphylactic shock [Recovered/Resolved]
  - Erythema [Recovered/Resolved]
  - Pruritus [Recovered/Resolved]

NARRATIVE: CASE EVENT DATE: 201703
